FAERS Safety Report 21477202 (Version 1)
Quarter: 2022Q4

REPORT INFORMATION
  Report Type: Spontaneous
  Country: US (occurrence: None)
  Receive Date: 20221018
  Receipt Date: 20221018
  Transmission Date: 20230112
  Serious: Yes (Hospitalization)
  Sender: FDA-Public Use
  Company Number: None

PATIENT
  Age: 79 Year
  Sex: Female

DRUGS (1)
  1. TALTZ [Suspect]
     Active Substance: IXEKIZUMAB
     Indication: Psoriasis
     Dosage: 1 EVERY 4 WEEKS UNDER THE SKIN?
     Route: 058
     Dates: start: 20161006

REACTIONS (1)
  - Pulmonary resection [None]

NARRATIVE: CASE EVENT DATE: 20220930
